FAERS Safety Report 15500699 (Version 2)
Quarter: 2018Q4

REPORT INFORMATION
  Report Type: Spontaneous
  Country: JP (occurrence: JP)
  Receive Date: 20181015
  Receipt Date: 20181105
  Transmission Date: 20190205
  Serious: Yes (Hospitalization, Other)
  Sender: FDA-Public Use
  Company Number: JP-SEATTLE GENETICS-2018SGN02579

PATIENT
  Age: 67 Year
  Sex: Female

DRUGS (1)
  1. ADCETRIS [Suspect]
     Active Substance: BRENTUXIMAB VEDOTIN
     Indication: CHRONIC LYMPHOCYTIC LEUKAEMIA
     Dosage: UNK
     Route: 050

REACTIONS (6)
  - Melaena [Unknown]
  - Petechiae [Unknown]
  - Mouth haemorrhage [Unknown]
  - Platelet count decreased [Recovering/Resolving]
  - Hepatitis B reactivation [Recovering/Resolving]
  - Neutrophil count decreased [Unknown]
